FAERS Safety Report 4853798-2 (Version None)
Quarter: 2005Q4

REPORT INFORMATION
  Report Type: 
  Country: None (occurrence: None)
  Receive Date: 20051212
  Receipt Date: 20051129
  Transmission Date: 20060501
  Serious: Yes (Hospitalization)
  Sender: FDA-Public Use
  Company Number: 2005162768

PATIENT
  Age: 41 Year
  Sex: Female
  Weight: 75.3425 kg

DRUGS (4)
  1. XANAX [Suspect]
     Indication: ILL-DEFINED DISORDER
     Dosage: 3 MG (1 MG, 3 IN 1 D), ORAL
     Route: 048
     Dates: start: 20050927
  2. LAMICTAL [Suspect]
     Indication: BIPOLAR I DISORDER
     Dosage: 125 MG, ORAL
     Route: 048
     Dates: start: 20050624, end: 20051010
  3. ESKALITH [Concomitant]
  4. SEROQUEL [Concomitant]

REACTIONS (1)
  - PANCREATITIS ACUTE [None]
